FAERS Safety Report 9109280 (Version 1)
Quarter: 2013Q1

REPORT INFORMATION
  Report Type: Spontaneous
  Country: US (occurrence: US)
  Receive Date: 20130222
  Receipt Date: 20130222
  Transmission Date: 20140127
  Serious: Yes (Other)
  Sender: FDA-Public Use
  Company Number: US-PURDUE-USA-2013-0099085

PATIENT
  Age: 51 Year
  Sex: Male

DRUGS (1)
  1. OXYCONTIN (NDA 22-272) [Suspect]

REACTIONS (5)
  - Lumbar spinal stenosis [Unknown]
  - Congenital cystic kidney disease [Unknown]
  - Arthritis [Unknown]
  - Osteitis [Unknown]
  - Nephrolithiasis [Unknown]
